FAERS Safety Report 8908554 (Version 2)
Quarter: 2012Q4

REPORT INFORMATION
  Report Type: 
  Country: US (occurrence: US)
  Receive Date: 20121114
  Receipt Date: 20121204
  Transmission Date: 20130627
  Serious: Yes (Other)
  Sender: FDA-Public Use
  Company Number: US-PFIZER INC-2012284403

PATIENT
  Age: 55 Year
  Sex: Male
  Weight: 96.15 kg

DRUGS (15)
  1. GABAPENTIN [Suspect]
     Indication: DEGENERATIVE DISC DISEASE
     Dosage: 300 mg, 3x/day
     Route: 048
     Dates: start: 2008
  2. GABAPENTIN [Suspect]
     Indication: SPINAL COLUMN STENOSIS
  3. CYMBALTA [Concomitant]
     Indication: LOW BACK PAIN
     Dosage: 60 mg, daily
     Route: 048
  4. FLEXERIL [Concomitant]
     Indication: MUSCLE SPASMS
     Dosage: 10 mg, daily
     Route: 048
  5. HYDROCHLOROTHIAZIDE [Concomitant]
     Indication: HEART DISORDER
     Dosage: 12.5 mg, daily
     Route: 048
  6. HYDROCHLOROTHIAZIDE [Concomitant]
     Indication: ANXIETY
  7. HYDROCHLOROTHIAZIDE [Concomitant]
     Indication: WATER RETENTION
  8. METOPROLOL [Concomitant]
     Indication: HEART DISORDER
     Dosage: 25 mg, daily
     Route: 048
  9. LISINOPRIL [Concomitant]
     Indication: HEART DISORDER
     Dosage: 20 mg, daily
     Route: 048
  10. AMITRIPTYLINE [Concomitant]
     Indication: SLEEP DISORDER
     Dosage: 50 mg, daily (At bed time)
     Route: 048
  11. AMITRIPTYLINE [Concomitant]
     Indication: PAIN
  12. CLONAZEPAM [Concomitant]
     Indication: ANXIETY
     Dosage: 25 mg, 2x/day
     Route: 048
  13. NUCYNTA ER [Concomitant]
     Indication: PAIN
     Dosage: 25 mg, daily
     Route: 048
  14. OXYCODONE [Concomitant]
     Indication: PAIN
     Dosage: 10 mg, daily (in the afternoon)
     Route: 048
  15. HYDROCODONE [Concomitant]
     Indication: PAIN
     Dosage: 7.5 mg, 3x/day (2 PM, 4 PM and at bed time)
     Route: 048

REACTIONS (6)
  - Fall [Recovering/Resolving]
  - Hand fracture [Recovering/Resolving]
  - Contusion [Recovering/Resolving]
  - Oedema peripheral [Recovering/Resolving]
  - Tendon pain [Recovering/Resolving]
  - Arthralgia [Recovering/Resolving]
